FAERS Safety Report 11225906 (Version 2)
Quarter: 2015Q3

REPORT INFORMATION
  Report Type: Spontaneous
  Country: JP (occurrence: JP)
  Receive Date: 20150629
  Receipt Date: 20150713
  Transmission Date: 20151125
  Serious: Yes (Hospitalization)
  Sender: FDA-Public Use
  Company Number: PHHY2015JP075617

PATIENT
  Age: 16 Year
  Sex: Male

DRUGS (2)
  1. VALPROATE SODIUM. [Suspect]
     Active Substance: VALPROATE SODIUM
     Indication: BIPOLAR DISORDER
     Dosage: 200 MG, UNK
     Route: 065
  2. LAMOTRIGIN [Suspect]
     Active Substance: LAMOTRIGINE
     Indication: BIPOLAR DISORDER
     Dosage: 50 MG, QD
     Route: 048

REACTIONS (14)
  - Pyrexia [Not Recovered/Not Resolved]
  - Rash [Unknown]
  - Pruritus [Unknown]
  - Face oedema [Recovering/Resolving]
  - Reticuloendothelial system stimulated [Unknown]
  - Papule [Unknown]
  - Histiocytosis haematophagic [Unknown]
  - Systemic inflammatory response syndrome [Unknown]
  - Staphylococcal infection [Recovered/Resolved]
  - Drug reaction with eosinophilia and systemic symptoms [Unknown]
  - Erythema [Unknown]
  - Hepatic function abnormal [Unknown]
  - Lymphadenopathy [Unknown]
  - Eosinophilia [Unknown]
